FAERS Safety Report 21523716 (Version 1)
Quarter: 2022Q4

REPORT INFORMATION
  Report Type: Spontaneous
  Country: US (occurrence: US)
  Receive Date: 20221029
  Receipt Date: 20221029
  Transmission Date: 20230113
  Serious: Yes (Hospitalization, Other)
  Sender: FDA-Public Use
  Company Number: US-SANOFI-01337590

PATIENT
  Age: 81 Year
  Sex: Male

DRUGS (3)
  1. DUPIXENT [Suspect]
     Active Substance: DUPILUMAB
     Indication: Eczema
     Dosage: UNK UNK, 1X
     Dates: start: 20221005, end: 20221005
  2. LEVAQUIN [Concomitant]
     Active Substance: LEVOFLOXACIN
     Route: 048
  3. VISTARIL (HYDROXYZINE HYDROCHLORIDE) [Concomitant]
     Active Substance: HYDROXYZINE HYDROCHLORIDE
     Indication: Pruritus

REACTIONS (6)
  - Cellulitis [Recovering/Resolving]
  - Klebsiella infection [Recovering/Resolving]
  - Limb injury [Recovering/Resolving]
  - Fatigue [Recovering/Resolving]
  - Scratch [Not Recovered/Not Resolved]
  - Pruritus [Not Recovered/Not Resolved]

NARRATIVE: CASE EVENT DATE: 20221001
